FAERS Safety Report 15310734 (Version 1)
Quarter: 2018Q3

REPORT INFORMATION
  Report Type: Spontaneous
  Country: US (occurrence: US)
  Receive Date: 20180813
  Receipt Date: 20180813
  Transmission Date: 20181010
  Serious: Yes (Other)
  Sender: FDA-Public Use
  Company Number: None

PATIENT
  Age: 61 Year
  Weight: 110.25 kg

DRUGS (1)
  1. LIDOCAINE PATCH 5% [Suspect]
     Active Substance: LIDOCAINE
     Indication: BACK PAIN
     Dosage: ?          QUANTITY:3 PATCH(ES);?
     Route: 062
     Dates: start: 20180410, end: 20180810

REACTIONS (3)
  - Manufacturing product shipping issue [None]
  - Intervertebral disc degeneration [None]
  - Poor quality drug administered [None]

NARRATIVE: CASE EVENT DATE: 20180808
